FAERS Safety Report 9118434 (Version 2)
Quarter: 2014Q2

REPORT INFORMATION
  Report Type: Spontaneous
  Country: US (occurrence: US)
  Receive Date: 20130219
  Receipt Date: 20140213
  Transmission Date: 20141212
  Serious: No
  Sender: FDA-Public Use
  Company Number: US-BRISTOL-MYERS SQUIBB COMPANY-17161837

PATIENT
  Age: 71 Year
  Sex: Female

DRUGS (19)
  1. ORENCIA [Suspect]
     Indication: RHEUMATOID ARTHRITIS
     Route: 058
     Dates: start: 20121006
  2. ACCUPRIL [Concomitant]
  3. CALCIUM [Concomitant]
  4. COUMADIN [Concomitant]
  5. FISH OIL [Concomitant]
  6. HUMALOG [Concomitant]
  7. LANTUS [Concomitant]
  8. LASIX [Concomitant]
  9. LUMIGAN [Concomitant]
  10. LYRICA [Concomitant]
  11. METFORMIN [Concomitant]
  12. METHOTREXATE [Concomitant]
  13. MVI [Concomitant]
  14. NORVASC [Concomitant]
  15. OMEPRAZOLE [Concomitant]
  16. PREDNISONE [Concomitant]
  17. SIMVASTATIN [Concomitant]
  18. SYMLIN [Concomitant]
  19. VITAMIN C [Concomitant]

REACTIONS (2)
  - Throat irritation [Unknown]
  - Nasal congestion [Unknown]
